FAERS Safety Report 8098889-0 (Version None)
Quarter: 2012Q1

REPORT INFORMATION
  Report Type: 
  Country: None (occurrence: None)
  Receive Date: 20120129
  Receipt Date: 20110925
  Transmission Date: 20120608
  Serious: No
  Sender: FDA-Public Use
  Company Number: US-ABBOTT-11P-163-0857897-00

PATIENT
  Age: 71 Year
  Sex: Female

DRUGS (5)
  1. HUMIRA [Suspect]
     Indication: CROHN'S DISEASE
     Dates: start: 20110409
  2. PREDNISONE TAB [Concomitant]
     Indication: CROHN'S DISEASE
  3. UNKNOWN ENEMA MEDICATION [Concomitant]
     Indication: CROHN'S DISEASE
     Dosage: AT BEDTIME
  4. PENTASA [Concomitant]
     Indication: CROHN'S DISEASE
  5. UNKNOWN FUNGAL MEDICATION [Concomitant]
     Indication: PRODUCT USED FOR UNKNOWN INDICATION
     Dosage: TO AFFECTED AREAS

REACTIONS (3)
  - BACTERIAL INFECTION [None]
  - OROPHARYNGEAL PAIN [None]
  - STOMATITIS [None]
